FAERS Safety Report 9016764 (Version 1)
Quarter: 2013Q1

REPORT INFORMATION
  Report Type: Spontaneous
  Country: US (occurrence: US)
  Receive Date: 20130116
  Receipt Date: 20130116
  Transmission Date: 20140127
  Serious: Yes (Other)
  Sender: FDA-Public Use
  Company Number: US-009507513-1301USA003878

PATIENT
  Age: 2 Year
  Sex: Male

DRUGS (2)
  1. SINGULAIR [Suspect]
     Indication: ASTHMA
     Dosage: 4 MG, QD
     Route: 048
  2. SINGULAIR [Suspect]
     Indication: RHINITIS ALLERGIC

REACTIONS (2)
  - Hallucination [Unknown]
  - Fear [Unknown]
